FAERS Safety Report 17903715 (Version 1)
Quarter: 2020Q2

REPORT INFORMATION
  Report Type: Spontaneous
  Country: ES (occurrence: ES)
  Receive Date: 20200616
  Receipt Date: 20200616
  Transmission Date: 20200714
  Serious: Yes (Hospitalization)
  Sender: FDA-Public Use
  Company Number: ES-PFIZER INC-2020232088

PATIENT
  Age: 85 Year
  Sex: Female

DRUGS (2)
  1. INDAPAMIDE. [Suspect]
     Active Substance: INDAPAMIDE
     Indication: HYPERTENSION
     Dosage: 2.5 MG, 1X/DAY (2,5MG/24H)
     Route: 048
     Dates: start: 20191120, end: 20191129
  2. SPIRONOLACTONE. [Suspect]
     Active Substance: SPIRONOLACTONE
     Indication: HYPERTENSION
     Dosage: 25 MG, 1X/DAY (25MG/24H)
     Route: 048
     Dates: start: 20191111, end: 20191129

REACTIONS (3)
  - Hypovolaemia [Recovered/Resolved]
  - Hypoosmolar state [Recovered/Resolved]
  - Hyponatraemia [Recovered/Resolved]

NARRATIVE: CASE EVENT DATE: 20191128
